FAERS Safety Report 8294909-9 (Version None)
Quarter: 2012Q2

REPORT INFORMATION
  Report Type: 
  Country: None (occurrence: None)
  Receive Date: 20120418
  Receipt Date: 20120404
  Transmission Date: 20120825
  Serious: Yes (Other)
  Sender: FDA-Public Use
  Company Number: ES-AMGEN-ESPSP2012018672

PATIENT
  Age: 38 Year
  Sex: Male
  Weight: 80 kg

DRUGS (5)
  1. ENBREL [Suspect]
     Indication: PSORIATIC ARTHROPATHY
     Dosage: 50 MG, WEEKLY
     Route: 058
     Dates: start: 20030101
  2. BALZAK PLUS [Concomitant]
     Indication: HYPERTENSION
     Dosage: 40 MG, 1X/DAY
     Route: 048
     Dates: start: 20120314
  3. LOSARTAN POTASSIUM [Concomitant]
     Indication: HYPERTENSION
     Dosage: 1 DF, 1X/DAY
     Route: 048
     Dates: start: 20050101, end: 20120314
  4. PROPRANOLOL HYDROCHLORIDE [Concomitant]
     Indication: MIGRAINE
     Dosage: 20 MG, 1X/DAY
     Route: 048
  5. OPENVAS                            /01635402/ [Concomitant]
     Indication: HYPERTENSION
     Dosage: 1 DF, 1X/DAY
     Route: 048
     Dates: end: 20120314

REACTIONS (3)
  - HEADACHE [None]
  - INJECTION SITE PAIN [None]
  - HYPERTENSION [None]
